FAERS Safety Report 6838998-4 (Version None)
Quarter: 2010Q3

REPORT INFORMATION
  Report Type: 
  Country: None (occurrence: None)
  Receive Date: 20100713
  Receipt Date: 20081110
  Transmission Date: 20110219
  Serious: Yes (Other)
  Sender: FDA-Public Use
  Company Number: US-PFIZER INC-2007038236

PATIENT
  Sex: Male
  Weight: 79.4 kg

DRUGS (2)
  1. CHANTIX [Suspect]
     Indication: SMOKING CESSATION THERAPY
     Dates: start: 20070312, end: 20070401
  2. LYRICA [Suspect]
     Indication: PAIN IN EXTREMITY
     Dates: start: 20080401

REACTIONS (13)
  - ABDOMINAL DISCOMFORT [None]
  - BALANCE DISORDER [None]
  - CARPAL TUNNEL SYNDROME [None]
  - CONDITION AGGRAVATED [None]
  - ECZEMA [None]
  - HYPOAESTHESIA [None]
  - INSOMNIA [None]
  - MUSCLE TWITCHING [None]
  - NAUSEA [None]
  - NUCLEAR MAGNETIC RESONANCE IMAGING ABNORMAL [None]
  - PAIN IN EXTREMITY [None]
  - SKIN BURNING SENSATION [None]
  - SPINAL OPERATION [None]
